FAERS Safety Report 7522632-4 (Version None)
Quarter: 2011Q2

REPORT INFORMATION
  Report Type: 
  Country: None (occurrence: None)
  Receive Date: 20110525
  Receipt Date: 20110516
  Transmission Date: 20111010
  Serious: Yes (Death, Hospitalization)
  Sender: FDA-Public Use
  Company Number: NSR_00232_2011

PATIENT
  Age: 19 Year
  Sex: Male

DRUGS (1)
  1. LAMOTRIGINE [Suspect]
     Indication: PRODUCT USED FOR UNKNOWN INDICATION
     Dosage: INGESTED AN ENTIRE BOTTLE  ORAL
     Route: 048

REACTIONS (12)
  - ASPIRATION [None]
  - ATRIOVENTRICULAR BLOCK COMPLETE [None]
  - HAEMODIALYSIS [None]
  - HYPOTENSION [None]
  - CARDIOGENIC SHOCK [None]
  - OVERDOSE [None]
  - HEART RATE INCREASED [None]
  - DISSEMINATED INTRAVASCULAR COAGULATION [None]
  - BUNDLE BRANCH BLOCK LEFT [None]
  - CARDIO-RESPIRATORY ARREST [None]
  - MULTI-ORGAN FAILURE [None]
  - CONVULSION [None]
